FAERS Safety Report 4284421-6 (Version None)
Quarter: 2004Q1

REPORT INFORMATION
  Report Type: 
  Country: None (occurrence: None)
  Receive Date: 20040130
  Receipt Date: 20040112
  Transmission Date: 20041129
  Serious: Yes (Other)
  Sender: FDA-Public Use
  Company Number: US_040199886

PATIENT
  Age: 53 Year
  Sex: Female
  Weight: 73 kg

DRUGS (5)
  1. HUMALOG [Suspect]
     Dates: start: 20030101
  2. HUMULIN R [Suspect]
     Dates: start: 19930101, end: 20030101
  3. HUMULIN N [Suspect]
     Dates: start: 19930101, end: 20030101
  4. LANTUS [Concomitant]
  5. SYNTHROID [Concomitant]

REACTIONS (5)
  - BLINDNESS [None]
  - BURNING SENSATION [None]
  - RENAL FAILURE [None]
  - RETINITIS PIGMENTOSA [None]
  - WEIGHT INCREASED [None]
